FAERS Safety Report 5016441-8 (Version None)
Quarter: 2006Q2

REPORT INFORMATION
  Report Type: 
  Country: None (occurrence: None)
  Receive Date: 20060531
  Receipt Date: 20060531
  Transmission Date: 20061013
  Serious: Yes (Disabling)
  Sender: FDA-Public Use
  Company Number: None

PATIENT
  Age: 8 Year
  Sex: Female

DRUGS (2)
  1. ENBREL [Suspect]
     Indication: UVEITIS
     Dosage: 25  2/WEEK  SC
     Route: 058
     Dates: start: 20040124, end: 20050903
  2. METHOTREXATE [Concomitant]

REACTIONS (1)
  - UVEITIS [None]
